FAERS Safety Report 6523152-6 (Version None)
Quarter: 2009Q4

REPORT INFORMATION
  Report Type: 
  Country: None (occurrence: None)
  Receive Date: 20091222
  Receipt Date: 20091215
  Transmission Date: 20100525
  Serious: Yes (Life-Threatening, Hospitalization)
  Sender: FDA-Public Use
  Company Number: DE-1180005

PATIENT
  Age: 72 Year
  Sex: Male

DRUGS (1)
  1. FLUORESCITE [Suspect]
     Indication: VENOUS OCCLUSION
     Dosage: 5 ML, INTRAVENOUS BOLUS
     Route: 040

REACTIONS (3)
  - ATRIOVENTRICULAR BLOCK FIRST DEGREE [None]
  - MYOCARDIAL INFARCTION [None]
  - RECTAL TENESMUS [None]
